FAERS Safety Report 22054052 (Version 1)
Quarter: 2023Q1

REPORT INFORMATION
  Report Type: Spontaneous
  Country: US (occurrence: None)
  Receive Date: 20230301
  Receipt Date: 20230301
  Transmission Date: 20230418
  Serious: No
  Sender: FDA-Public Use
  Company Number: None

PATIENT
  Age: 72 Year
  Sex: Male
  Weight: 111.08 kg

DRUGS (13)
  1. LENALIDOMIDE [Suspect]
     Active Substance: LENALIDOMIDE
     Indication: Plasma cell myeloma
     Dosage: OTHER FREQUENCY : 3W, 1W OFF;?
     Route: 048
  2. ATORVASTATIN [Concomitant]
     Active Substance: ATORVASTATIN
  3. BUMETANIDE [Concomitant]
     Active Substance: BUMETANIDE
  4. CALCIUM CARBONATE [Concomitant]
     Active Substance: CALCIUM CARBONATE
  5. DIGOX [Concomitant]
     Active Substance: DIGOXIN
  6. ELIQUIS [Concomitant]
     Active Substance: APIXABAN
  7. Vitamin D-400 [Concomitant]
  8. VITAMIN B12 [Concomitant]
     Active Substance: CYANOCOBALAMIN
  9. METOLAZONE [Concomitant]
     Active Substance: METOLAZONE
  10. METOPROLOL TARTRATE [Concomitant]
     Active Substance: METOPROLOL TARTRATE
  11. Symbicort Inhalation [Concomitant]
  12. TAMSULOSIN [Concomitant]
     Active Substance: TAMSULOSIN
  13. TYLENOL [Concomitant]
     Active Substance: ACETAMINOPHEN

REACTIONS (2)
  - Full blood count abnormal [None]
  - Therapy interrupted [None]
